FAERS Safety Report 24260448 (Version 1)
Quarter: 2024Q3

REPORT INFORMATION
  Report Type: Spontaneous
  Country: ES (occurrence: ES)
  Receive Date: 20240828
  Receipt Date: 20240828
  Transmission Date: 20241017
  Serious: Yes (Other)
  Sender: SANDOZ
  Company Number: ES-SANDOZ-SDZ2024ES075705

PATIENT
  Sex: Female

DRUGS (1)
  1. FILGRASTIM [Suspect]
     Active Substance: FILGRASTIM
     Indication: Product used for unknown indication
     Dosage: UNK
     Route: 065

REACTIONS (6)
  - Noninfective encephalitis [Recovering/Resolving]
  - Genital discomfort [Recovering/Resolving]
  - Vulvovaginal discomfort [Recovering/Resolving]
  - Skin irritation [Recovering/Resolving]
  - Insomnia [Recovering/Resolving]
  - Product temperature excursion issue [Unknown]
